FAERS Safety Report 22158595 (Version 2)
Quarter: 2023Q2

REPORT INFORMATION
  Report Type: Spontaneous
  Country: US (occurrence: US)
  Receive Date: 20230331
  Receipt Date: 20230428
  Transmission Date: 20230722
  Serious: Yes (Hospitalization, Other)
  Sender: FDA-Public Use
  Company Number: US-ABBVIE-4315264

PATIENT
  Age: 57 Year
  Sex: Female
  Weight: 78.925 kg

DRUGS (1)
  1. RINVOQ [Suspect]
     Active Substance: UPADACITINIB
     Indication: Rheumatoid arthritis
     Route: 048
     Dates: start: 20230110

REACTIONS (2)
  - Neutrophil count decreased [Recovered/Resolved]
  - Leukaemia [Unknown]

NARRATIVE: CASE EVENT DATE: 20230307
